FAERS Safety Report 25674416 (Version 2)
Quarter: 2025Q3

REPORT INFORMATION
  Report Type: Report from Study
  Country: US (occurrence: US)
  Receive Date: 20250813
  Receipt Date: 20250820
  Transmission Date: 20251021
  Serious: Yes (Hospitalization)
  Sender: TAKEDA
  Company Number: US-TAKEDA-US201911451

PATIENT
  Sex: Female

DRUGS (6)
  1. LANADELUMAB [Suspect]
     Active Substance: LANADELUMAB
     Indication: Immune system disorder
  2. LANADELUMAB [Suspect]
     Active Substance: LANADELUMAB
     Dosage: 300 MILLIGRAM, Q2WEEKS
     Dates: start: 2022
  3. LANADELUMAB [Suspect]
     Active Substance: LANADELUMAB
     Dosage: 300 MILLIGRAM, Q2WEEKS
  4. CINRYZE [Suspect]
     Active Substance: HUMAN C1-ESTERASE INHIBITOR
     Indication: Immune system disorder
  5. CINRYZE [Suspect]
     Active Substance: HUMAN C1-ESTERASE INHIBITOR
  6. CINRYZE [Suspect]
     Active Substance: HUMAN C1-ESTERASE INHIBITOR

REACTIONS (12)
  - Chest pain [Unknown]
  - Neck pain [Unknown]
  - Pain in jaw [Unknown]
  - Pain in extremity [Unknown]
  - Hypoaesthesia [Unknown]
  - Chest discomfort [Unknown]
  - Dyspepsia [Unknown]
  - Skin lesion [Unknown]
  - Pruritus [Unknown]
  - Prescribed overdose [Unknown]
  - Hereditary angioedema [Recovered/Resolved]
  - Injection site pruritus [Recovered/Resolved]
